FAERS Safety Report 11927102 (Version 1)
Quarter: 2016Q1

REPORT INFORMATION
  Report Type: Spontaneous
  Country: GB (occurrence: GB)
  Receive Date: 20160119
  Receipt Date: 20160119
  Transmission Date: 20160526
  Serious: Yes (Other)
  Sender: FDA-Public Use
  Company Number: PHHY2016GB002327

PATIENT
  Age: 62 Year
  Sex: Male

DRUGS (5)
  1. PREGABALIN. [Suspect]
     Active Substance: PREGABALIN
     Indication: PRODUCT USED FOR UNKNOWN INDICATION
     Route: 065
  2. ZOMORPH [Suspect]
     Active Substance: MORPHINE SULFATE
     Indication: ANALGESIC THERAPY
     Dosage: 3 DF, UNK(100MG ZOMORPH 10, 30, 60, 100, 200 MG)
     Route: 065
     Dates: end: 20151017
  3. DIAZEPAM. [Suspect]
     Active Substance: DIAZEPAM
     Indication: PRODUCT USED FOR UNKNOWN INDICATION
     Dosage: 50 MG, QD
     Route: 065
  4. DIHYDROCODEINE [Suspect]
     Active Substance: DIHYDROCODEINE
     Indication: PRODUCT USED FOR UNKNOWN INDICATION
     Route: 065
  5. ZOMORPH [Suspect]
     Active Substance: MORPHINE SULFATE
     Dosage: 300 MG, UNK( ZOMORPH 10, 30, 60, 100, 200 MG)
     Route: 065
     Dates: start: 20151020

REACTIONS (5)
  - Sedation [Unknown]
  - Therapy cessation [Unknown]
  - Product supply issue [Unknown]
  - Respiratory depression [Unknown]
  - Somnolence [Unknown]

NARRATIVE: CASE EVENT DATE: 201510
